FAERS Safety Report 10055687 (Version 1)
Quarter: 2014Q2

REPORT INFORMATION
  Report Type: Spontaneous
  Country: US (occurrence: US)
  Receive Date: 20140403
  Receipt Date: 20140403
  Transmission Date: 20141212
  Serious: No
  Sender: FDA-Public Use
  Company Number: US-B.I. PHARMACEUTICALS,INC./RIDGEFIELD-2014-BI-12991BP

PATIENT
  Sex: Male
  Weight: 118 kg

DRUGS (3)
  1. SPIRIVA [Suspect]
     Indication: CHRONIC OBSTRUCTIVE PULMONARY DISEASE
     Dosage: 18 MCG
     Route: 055
     Dates: start: 2009
  2. ADVAIR [Concomitant]
     Indication: CHRONIC OBSTRUCTIVE PULMONARY DISEASE
     Dosage: STRENGTH: 250/50; DAILY DOSE: 500/100
     Route: 055
  3. NASONEX [Concomitant]
     Indication: SECRETION DISCHARGE
     Dosage: FORMULATION: NASAL SPRAY; STRENGTH: 2 SPRAYS
     Route: 045

REACTIONS (1)
  - Pulmonary mass [Unknown]
